FAERS Safety Report 8348181-1 (Version None)
Quarter: 2012Q2

REPORT INFORMATION
  Report Type: 
  Country: None (occurrence: None)
  Receive Date: 20120509
  Receipt Date: 20100624
  Transmission Date: 20120825
  Serious: No
  Sender: FDA-Public Use
  Company Number: US-TEVA-2010003497

PATIENT
  Sex: Female
  Weight: 70.37 kg

DRUGS (4)
  1. EXCEDRIN (MIGRAINE) [Concomitant]
  2. NUVIGIL [Suspect]
     Indication: SOMNOLENCE
     Dosage: 250 MILLIGRAM;
     Route: 048
     Dates: start: 20100601
  3. XANAX [Concomitant]
     Indication: ANXIETY
  4. VITAMIN C/FISH OIL [Concomitant]

REACTIONS (1)
  - NERVOUSNESS [None]
